FAERS Safety Report 11075515 (Version 3)
Quarter: 2015Q2

REPORT INFORMATION
  Report Type: Spontaneous
  Country: KR (occurrence: KR)
  Receive Date: 20150429
  Receipt Date: 20150519
  Transmission Date: 20150821
  Serious: Yes (Other)
  Sender: FDA-Public Use
  Company Number: KR-PFIZER INC-2015146922

PATIENT
  Age: 76 Year
  Sex: Male
  Weight: 52 kg

DRUGS (6)
  1. TAZOFERAN [Suspect]
     Active Substance: PIPERACILLIN SODIUM\TAZOBACTAM SODIUM
     Indication: ENTERITIS
     Dosage: UNK
     Route: 042
     Dates: end: 20110512
  2. DIGOXIN. [Concomitant]
     Active Substance: DIGOXIN
     Indication: CARDIAC FAILURE CONGESTIVE
     Dosage: 0.25 MG, UNK
     Route: 048
     Dates: start: 20110418
  3. TAZOCIN [Suspect]
     Active Substance: PIPERACILLIN SODIUM\TAZOBACTAM SODIUM
     Indication: ENTERITIS
     Dosage: 4.5 G, 4X/DAY
     Route: 042
     Dates: start: 20110513, end: 20110517
  4. NORPIN [Concomitant]
     Indication: PROPHYLAXIS
     Dosage: UNK, AS NEEDED
     Route: 042
     Dates: start: 20110418
  5. ZANTAC [Concomitant]
     Active Substance: RANITIDINE HYDROCHLORIDE
     Indication: GASTROINTESTINAL HAEMORRHAGE
     Dosage: 100 MG, UNK
     Route: 042
     Dates: start: 20110414, end: 20110515
  6. MAGNESIUM [Concomitant]
     Active Substance: MAGNESIUM
     Indication: PROPHYLAXIS
     Dosage: UNK, AS NEEDED
     Route: 042
     Dates: start: 20110416

REACTIONS (1)
  - Bone marrow failure [Not Recovered/Not Resolved]

NARRATIVE: CASE EVENT DATE: 20110515
